FAERS Safety Report 18049109 (Version 2)
Quarter: 2020Q3

REPORT INFORMATION
  Report Type: Spontaneous
  Country: US (occurrence: US)
  Receive Date: 20200721
  Receipt Date: 20200721
  Transmission Date: 20201103
  Serious: No
  Sender: FDA-Public Use
  Company Number: US-PFIZER INC-2020272091

PATIENT
  Age: 51 Year
  Sex: Male

DRUGS (1)
  1. CAMPTOSAR [Suspect]
     Active Substance: IRINOTECAN HYDROCHLORIDE
     Dosage: 440 MG (440 MG IV Q (EVERY) 2 WEEKS)
     Route: 042

REACTIONS (2)
  - Neoplasm progression [Unknown]
  - Impaired work ability [Unknown]
